FAERS Safety Report 23571226 (Version 1)
Quarter: 2024Q1

REPORT INFORMATION
  Report Type: Spontaneous
  Country: US (occurrence: None)
  Receive Date: 20240227
  Receipt Date: 20240227
  Transmission Date: 20240409
  Serious: Yes (Death)
  Sender: FDA-Public Use
  Company Number: None

PATIENT
  Age: 63 Year
  Sex: Male

DRUGS (1)
  1. REPATHA [Suspect]
     Active Substance: EVOLOCUMAB
     Indication: Hypercholesterolaemia
     Dosage: 140MG  Q 2 WKS FOR 26 DOSES?
     Route: 058
     Dates: start: 20210802

REACTIONS (1)
  - Death [None]

NARRATIVE: CASE EVENT DATE: 20240214
